FAERS Safety Report 5223386-7 (Version None)
Quarter: 2007Q1

REPORT INFORMATION
  Report Type: 
  Country: None (occurrence: None)
  Receive Date: 20070129
  Receipt Date: 20070116
  Transmission Date: 20070707
  Serious: Yes (Hospitalization)
  Sender: FDA-Public Use
  Company Number: NL-ABBOTT-06P-114-0345822-00

PATIENT
  Sex: Male
  Weight: 77 kg

DRUGS (17)
  1. KALETRA [Suspect]
     Indication: HIV INFECTION
     Dates: start: 20040322
  2. LAMIVUDINE + ZIDOVUDINE [Suspect]
     Indication: HIV INFECTION
     Route: 048
     Dates: start: 20040322
  3. CETIRIZINE HYDROCHLORIDE [Concomitant]
     Indication: DRUG USE FOR UNKNOWN INDICATION
     Dates: start: 20040407
  4. TEMAZEPAM [Concomitant]
     Indication: DRUG USE FOR UNKNOWN INDICATION
     Dates: start: 20040423
  5. TEMAZEPAM [Concomitant]
     Dates: start: 20060628
  6. BETAMETHASONE [Concomitant]
     Indication: DRUG USE FOR UNKNOWN INDICATION
     Dates: start: 20040629
  7. ASYCIONE [Concomitant]
     Indication: DRUG USE FOR UNKNOWN INDICATION
     Dates: start: 20040813, end: 20040817
  8. IMOCIX [Concomitant]
     Indication: DRUG USE FOR UNKNOWN INDICATION
     Dates: start: 20040928
  9. IBUPROFEN [Concomitant]
     Indication: DRUG USE FOR UNKNOWN INDICATION
     Dates: start: 20060619
  10. IBUPROFEN [Concomitant]
  11. PROPOFOL [Concomitant]
     Indication: GENERAL ANAESTHESIA
  12. ROCURONE BROMIDE [Concomitant]
     Indication: GENERAL ANAESTHESIA
  13. LIDOCAIN [Concomitant]
     Indication: GENERAL ANAESTHESIA
  14. FENTANYL [Concomitant]
     Indication: GENERAL ANAESTHESIA
  15. EPHEDRINE HYDROCHLORIDE [Concomitant]
     Indication: GENERAL ANAESTHESIA
  16. ROPIVACAINE [Concomitant]
     Indication: GENERAL ANAESTHESIA
  17. ACETAMINOPHEN [Concomitant]
     Indication: DRUG USE FOR UNKNOWN INDICATION
     Dates: start: 20060919

REACTIONS (2)
  - INGUINAL HERNIA [None]
  - PAIN [None]
